FAERS Safety Report 7865399-2 (Version None)
Quarter: 2011Q4

REPORT INFORMATION
  Report Type: 
  Country: None (occurrence: None)
  Receive Date: 20111028
  Receipt Date: 20101214
  Transmission Date: 20120403
  Serious: No
  Sender: FDA-Public Use
  Company Number: US-GLAXOSMITHKLINE-A0899707A

PATIENT
  Age: 63 Year
  Sex: Male

DRUGS (6)
  1. PROVENTIL [Concomitant]
  2. DOXAZOSIN MESYLATE [Concomitant]
  3. SINGULAIR [Concomitant]
  4. SIMVASTATIN [Concomitant]
  5. LISINOPRIL [Concomitant]
  6. ADVAIR DISKUS 100/50 [Suspect]
     Indication: ASTHMA
     Dosage: 1PUFF PER DAY
     Route: 055
     Dates: start: 20080101

REACTIONS (3)
  - PRODUCT QUALITY ISSUE [None]
  - WHEEZING [None]
  - DRUG INEFFECTIVE [None]
